FAERS Safety Report 9818277 (Version 2)
Quarter: 2014Q1

REPORT INFORMATION
  Report Type: Spontaneous
  Country: US (occurrence: US)
  Receive Date: 20140115
  Receipt Date: 20140326
  Transmission Date: 20141002
  Serious: No
  Sender: FDA-Public Use
  Company Number: US-009507513-1312USA009712

PATIENT
  Sex: Female
  Weight: 68.27 kg

DRUGS (10)
  1. MIRALAX [Suspect]
     Indication: PRODUCT USED FOR UNKNOWN INDICATION
     Dosage: UNK, QOD
     Route: 048
  2. MIRALAX [Suspect]
     Dosage: 17 G, QD
     Route: 048
     Dates: start: 201303, end: 20131203
  3. SYNTHROID [Concomitant]
     Indication: THYROID DISORDER
     Dosage: UNK, UNKNOWN
  4. GABAPENTIN [Concomitant]
     Indication: HERPES ZOSTER
     Dosage: UNK, UNKNOWN
  5. FUROSEMIDE [Concomitant]
     Indication: FLUID RETENTION
     Dosage: UNK, UNKNOWN
  6. IRON (UNSPECIFIED) [Concomitant]
     Indication: IRON DEFICIENCY
     Dosage: UNK, UNKNOWN
  7. RED YEAST [Concomitant]
     Indication: BLOOD CHOLESTEROL
     Dosage: UNK, UNKNOWN
  8. LYSINE [Concomitant]
     Indication: HERPES ZOSTER
     Dosage: UNK, UNKNOWN
  9. CALCIUM (UNSPECIFIED) [Concomitant]
     Indication: PRODUCT USED FOR UNKNOWN INDICATION
     Dosage: UNK, UNKNOWN
  10. MAGNESIUM (UNSPECIFIED) [Concomitant]
     Dosage: UNK, UNKNOWN

REACTIONS (6)
  - Faecal incontinence [Recovered/Resolved]
  - Faeces soft [Recovered/Resolved]
  - Frequent bowel movements [Recovered/Resolved]
  - Flatulence [Unknown]
  - Inappropriate schedule of drug administration [Unknown]
  - Incorrect drug administration duration [Unknown]
